FAERS Safety Report 12770851 (Version 3)
Quarter: 2017Q1

REPORT INFORMATION
  Report Type: Report from Study
  Country: CA (occurrence: CA)
  Receive Date: 20160922
  Receipt Date: 20170306
  Transmission Date: 20170428
  Serious: Yes (Death, Hospitalization)
  Sender: FDA-Public Use
  Company Number: CA-HLSUS-2016-CA-000448

PATIENT
  Age: 70 Year
  Sex: Male

DRUGS (5)
  1. CLOZARIL [Suspect]
     Active Substance: CLOZAPINE
     Indication: CORTICOBASAL DEGENERATION
     Dosage: 75 MG QAM, 100 MG QHS
     Route: 048
     Dates: start: 20150914
  2. SENOKOT [Concomitant]
     Active Substance: SENNOSIDES
     Indication: CONSTIPATION
     Dosage: 2 QHS
     Route: 048
  3. TRAZODONE [Concomitant]
     Active Substance: TRAZODONE HYDROCHLORIDE
     Indication: AGITATION
     Dosage: 50 MG BID, 100 MG QHS
     Route: 048
  4. ACETAMINOPHEN. [Concomitant]
     Active Substance: ACETAMINOPHEN
     Indication: PAIN
     Dosage: 650 MG QID
     Route: 048
  5. KELIXIR [Concomitant]
     Indication: BLOOD POTASSIUM DECREASED
     Dosage: 40 MG Q DAILY
     Route: 048

REACTIONS (3)
  - Infection [Unknown]
  - Aspiration [Fatal]
  - Dehydration [Unknown]

NARRATIVE: CASE EVENT DATE: 201609
